FAERS Safety Report 9674869 (Version 1)
Quarter: 2013Q4

REPORT INFORMATION
  Report Type: Spontaneous
  Country: US (occurrence: None)
  Receive Date: 20131106
  Receipt Date: 20131106
  Transmission Date: 20140711
  Serious: Yes (Life-Threatening, Hospitalization)
  Sender: FDA-Public Use
  Company Number: None

PATIENT
  Age: 1 Month
  Sex: Male

DRUGS (2)
  1. AZITHROMYCIN 250MG [Suspect]
     Indication: COUGH
     Route: 048
     Dates: start: 20130822, end: 20130828
  2. AZITHROMYCIN 250MG [Suspect]
     Indication: WHEEZING
     Route: 048
     Dates: start: 20130822, end: 20130828

REACTIONS (2)
  - Maternal drugs affecting foetus [None]
  - Pyloric stenosis [None]
